FAERS Safety Report 13796099 (Version 8)
Quarter: 2017Q4

REPORT INFORMATION
  Report Type: Report from Study
  Country: JP (occurrence: JP)
  Receive Date: 20170726
  Receipt Date: 20171129
  Transmission Date: 20180320
  Serious: Yes (Death, Life-Threatening, Hospitalization, Other)
  Sender: FDA-Public Use
  Company Number: JP-CELGENEUS-JPN-20170705686

PATIENT
  Age: 73 Year
  Sex: Male

DRUGS (8)
  1. REVLIMID [Suspect]
     Active Substance: LENALIDOMIDE
     Dosage: 5 MILLIGRAM
     Route: 048
     Dates: start: 20170703, end: 20170717
  2. ACICLOVIR [Concomitant]
     Active Substance: ACYCLOVIR
     Indication: PROPHYLAXIS
     Route: 048
  3. BAYASPIRIN [Concomitant]
     Active Substance: ASPIRIN
     Indication: PROPHYLAXIS
     Route: 048
  4. REVLIMID [Suspect]
     Active Substance: LENALIDOMIDE
     Dosage: 5 MILLIGRAM
     Route: 048
     Dates: start: 20170619, end: 20170623
  5. DAIPHEN [Suspect]
     Active Substance: SULFAMETHOXAZOLE\TRIMETHOPRIM
     Indication: PROPHYLAXIS
     Route: 048
  6. VFEND [Concomitant]
     Active Substance: VORICONAZOLE
     Indication: PROPHYLAXIS
     Route: 048
  7. REVLIMID [Suspect]
     Active Substance: LENALIDOMIDE
     Indication: ADULT T-CELL LYMPHOMA/LEUKAEMIA
     Dosage: 5 MILLIGRAM
     Route: 048
     Dates: start: 20170510, end: 20170514
  8. POTELIGEO [Suspect]
     Active Substance: MOGAMULIZUMAB
     Indication: ADULT T-CELL LYMPHOMA/LEUKAEMIA
     Route: 065
     Dates: start: 2017, end: 2017

REACTIONS (12)
  - Toxic epidermal necrolysis [Recovered/Resolved]
  - Sepsis [Recovered/Resolved]
  - Blood potassium increased [Recovering/Resolving]
  - Blood uric acid increased [Recovering/Resolving]
  - Decreased appetite [Unknown]
  - Dyspnoea [Unknown]
  - Pneumonia [Fatal]
  - Dermatitis exfoliative [Recovering/Resolving]
  - Dermatitis exfoliative [Recovering/Resolving]
  - Adult T-cell lymphoma/leukaemia [Unknown]
  - Disseminated intravascular coagulation [Recovered/Resolved]
  - Erythema [Recovering/Resolving]

NARRATIVE: CASE EVENT DATE: 201705
